FAERS Safety Report 8788857 (Version 3)
Quarter: 2013Q1

REPORT INFORMATION
  Report Type: Report from Study
  Country: JP (occurrence: JP)
  Receive Date: 20120916
  Receipt Date: 20130207
  Transmission Date: 20140127
  Serious: No
  Sender: FDA-Public Use
  Company Number: JP-009507513-1209JPN003342

PATIENT
  Age: 45 Year
  Sex: Male
  Weight: 77 kg

DRUGS (22)
  1. PEGINTRON [Suspect]
     Indication: CHRONIC HEPATITIS C
     Dosage: 1.5 MICROGRAM PER KILOGRAM, UNK
     Route: 058
     Dates: start: 20120302, end: 20120316
  2. PEGINTRON [Suspect]
     Dosage: 0.8 MICROGRAM PER KILOGRAM, UNK
     Route: 058
     Dates: start: 20120323, end: 20120406
  3. PEGINTRON [Suspect]
     Dosage: 1.0 MICROGRAM PER KILOGRAM, UNK
     Route: 058
     Dates: start: 20120413, end: 20120413
  4. PEGINTRON [Suspect]
     Dosage: 0.8 MICROGRAM PER KILOGRAM, UNK
     Route: 058
     Dates: start: 20120420, end: 20120427
  5. PEGINTRON [Suspect]
     Dosage: 0.9 MICROGRAM PER KILOGRAM, UNK
     Route: 058
     Dates: start: 20120502, end: 20120518
  6. PEGINTRON [Suspect]
     Dosage: 1.0 MICROGRAM PER KILOGRAM, QW
     Route: 058
     Dates: start: 20120525, end: 20120601
  7. PEGINTRON [Suspect]
     Dosage: 1.3 MICROGRAM PER KILOGRAM, UNK
     Route: 058
     Dates: start: 20120606, end: 20120810
  8. REBETOL [Suspect]
     Indication: CHRONIC HEPATITIS C
     Dosage: 800 MG, QD
     Route: 048
     Dates: start: 20120302, end: 20120405
  9. REBETOL [Suspect]
     Dosage: 600 MG, QD
     Route: 048
     Dates: start: 20120406, end: 20120802
  10. REBETOL [Suspect]
     Dosage: 400 MG, QD
     Route: 048
     Dates: start: 20120803, end: 20120816
  11. TELAVIC [Suspect]
     Indication: CHRONIC HEPATITIS C
     Dosage: 2250 MG, QD
     Route: 048
     Dates: start: 20120302, end: 20120517
  12. TELAVIC [Suspect]
     Dosage: 1500 MG, QD
     Route: 048
     Dates: start: 20120518, end: 20120525
  13. URSO [Concomitant]
     Indication: CHRONIC HEPATITIS C
     Dosage: 600 MG, QD
     Route: 048
  14. LOXONIN [Concomitant]
     Indication: BACK PAIN
     Dosage: PROPERLY/PER DAY, PRN
     Route: 061
  15. ADALAT CR [Concomitant]
     Indication: HYPERTENSION
     Dosage: 40 MG, QD
     Route: 048
     Dates: end: 20120615
  16. ADALAT CR [Concomitant]
     Dosage: 20 MG, QD
     Route: 048
     Dates: start: 20120616
  17. ARTIST [Concomitant]
     Indication: HYPERTENSION
     Dosage: 10 MG, QD
     Route: 048
  18. RENIVACE TABLETS 10 [Concomitant]
     Indication: HYPERTENSION
     Dosage: 10 MG, QD
     Route: 048
  19. GLIMICRON [Concomitant]
     Indication: DIABETES MELLITUS
     Dosage: 40 MG, QD
     Route: 048
  20. JANUVIA TABLETS 50MG [Concomitant]
     Indication: DIABETES MELLITUS
     Dosage: 50 MG, QD
     Route: 048
  21. ZANTAC [Concomitant]
     Indication: PROPHYLAXIS
     Dosage: 300 MG, QD
     Route: 048
  22. LOXONIN [Concomitant]
     Indication: PROPHYLAXIS
     Dosage: 60 MG, QD
     Route: 048
     Dates: start: 20120302, end: 20120302

REACTIONS (2)
  - Retinal haemorrhage [Recovered/Resolved]
  - Renal impairment [Recovered/Resolved]
